FAERS Safety Report 14954060 (Version 1)
Quarter: 2018Q2

REPORT INFORMATION
  Report Type: Spontaneous
  Country: SE (occurrence: SE)
  Receive Date: 20180530
  Receipt Date: 20180530
  Transmission Date: 20180711
  Serious: Yes (Hospitalization)
  Sender: FDA-Public Use
  Company Number: SE-TAKEDA-THQ2005A00450

PATIENT
  Age: 87 Year
  Sex: Female

DRUGS (6)
  1. MADOPARK [Concomitant]
     Active Substance: BENSERAZIDE HYDROCHLORIDE\LEVODOPA
     Dosage: UNK
     Route: 048
  2. LANZO [Suspect]
     Active Substance: LANSOPRAZOLE
     Indication: PRODUCT USED FOR UNKNOWN INDICATION
     Dosage: 30 MG, UNK
     Route: 048
     Dates: start: 20050105, end: 20050106
  3. CYKLOKAPRON [Concomitant]
     Active Substance: TRANEXAMIC ACID
     Indication: ABDOMINAL PAIN
  4. PANTOLOC                           /01263204/ [Concomitant]
     Active Substance: PANTOPRAZOLE SODIUM
     Dosage: 40 MG, QD
     Route: 042
     Dates: start: 20050103, end: 20050105
  5. ZOTON [Suspect]
     Active Substance: LANSOPRAZOLE
     Indication: UNEVALUABLE EVENT
     Dosage: 30 MG, UNK
     Route: 048
     Dates: start: 20050105, end: 20050106
  6. CYKLOKAPRON [Concomitant]
     Active Substance: TRANEXAMIC ACID
     Indication: VOMITING
     Dosage: 1 G, QID
     Dates: start: 20050103, end: 20050105

REACTIONS (6)
  - Motor dysfunction [Unknown]
  - Confusional state [Recovered/Resolved]
  - Disorientation [Recovered/Resolved]
  - Aggression [Unknown]
  - Hallucination [Recovered/Resolved]
  - Disorientation [None]

NARRATIVE: CASE EVENT DATE: 20050106
